FAERS Safety Report 7492779-X (Version None)
Quarter: 2011Q2

REPORT INFORMATION
  Report Type: 
  Country: None (occurrence: None)
  Receive Date: 20110519
  Receipt Date: 20110518
  Transmission Date: 20111010
  Serious: Yes (Other)
  Sender: FDA-Public Use
  Company Number: IT-BAYER-2011-042726

PATIENT
  Age: 74 Year
  Sex: Male

DRUGS (3)
  1. AMARYL [Concomitant]
  2. ULTRAVIST 150 [Suspect]
     Indication: COMPUTERISED TOMOGRAM
     Dosage: 100 ML, ONCE
     Route: 042
     Dates: start: 20110506, end: 20110506
  3. TOTALIP [Concomitant]

REACTIONS (3)
  - RHINITIS ALLERGIC [None]
  - LARYNGEAL STENOSIS [None]
  - ERYTHEMA [None]
